FAERS Safety Report 12535778 (Version 3)
Quarter: 2016Q3

REPORT INFORMATION
  Report Type: Spontaneous
  Country: US (occurrence: US)
  Receive Date: 20160707
  Receipt Date: 20160721
  Transmission Date: 20161109
  Serious: Yes (Hospitalization, Other)
  Sender: FDA-Public Use
  Company Number: US-UNITED THERAPEUTICS-UNT-2016-008819

PATIENT
  Age: 57 Year
  Sex: Female
  Weight: 68.27 kg

DRUGS (6)
  1. ADCIRCA [Suspect]
     Active Substance: TADALAFIL
     Indication: PRODUCT USED FOR UNKNOWN INDICATION
     Dosage: UNK
     Dates: start: 201605
  2. TYVASO [Suspect]
     Active Substance: TREPROSTINIL
     Dosage: UNK
  3. TYVASO [Suspect]
     Active Substance: TREPROSTINIL
     Indication: PULMONARY ARTERIAL HYPERTENSION
     Dosage: 18-54 ?G, QID
     Dates: start: 20160512
  4. TYVASO [Suspect]
     Active Substance: TREPROSTINIL
     Dosage: UNK
  5. LETAIRIS [Suspect]
     Active Substance: AMBRISENTAN
     Indication: PULMONARY ARTERIAL HYPERTENSION
     Dosage: 5 MG, QD
     Route: 065
     Dates: start: 201605
  6. PLAVIX [Concomitant]
     Active Substance: CLOPIDOGREL BISULFATE
     Indication: PRODUCT USED FOR UNKNOWN INDICATION

REACTIONS (14)
  - Facial asymmetry [Unknown]
  - Urinary tract infection [Unknown]
  - Dizziness [Unknown]
  - Fatigue [Unknown]
  - Migraine [Unknown]
  - Confusional state [Unknown]
  - Hypotension [Not Recovered/Not Resolved]
  - Oedema peripheral [Unknown]
  - Headache [Not Recovered/Not Resolved]
  - Cerebrovascular accident [Unknown]
  - Memory impairment [Unknown]
  - Muscular weakness [Unknown]
  - Hallucination [Unknown]
  - Dysarthria [Unknown]

NARRATIVE: CASE EVENT DATE: 201605
